FAERS Safety Report 9461761 (Version 1)
Quarter: 2013Q3

REPORT INFORMATION
  Report Type: Spontaneous
  Country: US (occurrence: None)
  Receive Date: 20130815
  Receipt Date: 20130815
  Transmission Date: 20140515
  Serious: No
  Sender: FDA-Public Use
  Company Number: None

PATIENT
  Age: 59 Year
  Sex: Female
  Weight: 86.18 kg

DRUGS (6)
  1. BOTOX [Suspect]
  2. LOSARTAN [Concomitant]
  3. OPANA [Concomitant]
  4. PREVACID [Concomitant]
  5. ONE-A-DAY WOMENS [Concomitant]
  6. ANACIN [Concomitant]

REACTIONS (1)
  - VIIth nerve paralysis [None]
